FAERS Safety Report 9955116 (Version 2)
Quarter: 2014Q1

REPORT INFORMATION
  Report Type: Spontaneous
  Country: PR (occurrence: PR)
  Receive Date: 20140304
  Receipt Date: 20140304
  Transmission Date: 20141002
  Serious: No
  Sender: FDA-Public Use
  Company Number: PR-ABBVIE-12P-131-0935848-00

PATIENT
  Sex: Female
  Weight: 75.82 kg

DRUGS (9)
  1. HUMIRA [Suspect]
     Indication: PSORIASIS
     Route: 058
     Dates: start: 2009, end: 201205
  2. HUMIRA [Suspect]
     Route: 058
     Dates: start: 201205, end: 201206
  3. UNKNOWN MEDICATION FOR INFLAMMATION AND PAIN [Suspect]
     Indication: INFLAMMATION
  4. UNKNOWN MEDICATION FOR INFLAMMATION AND PAIN [Suspect]
     Indication: PAIN
  5. ZANTAC [Concomitant]
     Indication: GASTRITIS
     Route: 048
     Dates: start: 2006
  6. EVISTA [Concomitant]
     Indication: OSTEOARTHRITIS
     Route: 048
     Dates: start: 2009
  7. PREVACID [Concomitant]
     Indication: GASTRITIS
     Route: 048
     Dates: start: 2006
  8. KLONOPIN [Concomitant]
     Indication: DEPRESSION
     Dosage: AT BEDTIME
     Route: 048
     Dates: start: 2006
  9. ZOLOFT [Concomitant]
     Indication: DEPRESSION
     Route: 048
     Dates: start: 2006

REACTIONS (6)
  - Osteoarthritis [Recovering/Resolving]
  - Nasopharyngitis [Recovered/Resolved]
  - Rash [Recovered/Resolved]
  - Chest pain [Recovered/Resolved]
  - Psoriasis [Unknown]
  - Pruritus generalised [Recovered/Resolved]
